FAERS Safety Report 10376131 (Version 2)
Quarter: 2014Q3

REPORT INFORMATION
  Report Type: Spontaneous
  Country: US (occurrence: US)
  Receive Date: 20140811
  Receipt Date: 20140811
  Transmission Date: 20150326
  Serious: No
  Sender: FDA-Public Use
  Company Number: US-ASTRAZENECA-2006UW09326

PATIENT
  Age: 55 Year
  Sex: Female
  Weight: 68 kg

DRUGS (17)
  1. BENICAR [Suspect]
     Active Substance: OLMESARTAN MEDOXOMIL
     Indication: HYPERTENSION
     Route: 065
  2. SINGULAIR [Concomitant]
     Active Substance: MONTELUKAST SODIUM
     Indication: ASTHMA
     Dosage: UNKNOWN DAILY
  3. XOPENEX [Concomitant]
     Active Substance: LEVALBUTEROL HYDROCHLORIDE
     Indication: ASTHMA
     Dosage: 2 PUFFS PRN
  4. LEVOXIL [Concomitant]
  5. ZYRTEC [Concomitant]
     Active Substance: CETIRIZINE HYDROCHLORIDE
     Indication: MULTIPLE ALLERGIES
  6. CLARITIN [Concomitant]
     Active Substance: LORATADINE
  7. AROMASIN [Concomitant]
     Active Substance: EXEMESTANE
  8. FASLODEX [Suspect]
     Active Substance: FULVESTRANT
     Indication: BREAST CANCER METASTATIC
     Route: 030
  9. TAMOXIFEN [Suspect]
     Active Substance: TAMOXIFEN
     Indication: BREAST CANCER
     Route: 048
     Dates: start: 1997, end: 1999
  10. VYTORIN [Concomitant]
     Active Substance: EZETIMIBE\SIMVASTATIN
  11. SYNTHROID [Concomitant]
     Active Substance: LEVOTHYROXINE SODIUM
     Indication: BLOOD PARATHYROID HORMONE DECREASED
  12. QVAR INHALER [Concomitant]
     Indication: ASTHMA
     Dosage: 2 PUFFS DAILY
  13. FEMARA [Concomitant]
     Active Substance: LETROZOLE
  14. PROTONIX [Concomitant]
     Active Substance: PANTOPRAZOLE SODIUM
     Indication: GASTROOESOPHAGEAL REFLUX DISEASE
  15. PREVACID [Concomitant]
     Active Substance: LANSOPRAZOLE
  16. ARIMIDEX [Suspect]
     Active Substance: ANASTROZOLE
     Indication: BREAST CANCER
     Route: 048
     Dates: start: 200601
  17. HCTZ  TRIANTERENE [Concomitant]
     Indication: HYPERTENSION
     Dosage: 25 37.5 MG DAILY

REACTIONS (8)
  - Asthma [Recovered/Resolved]
  - Hypertension [Unknown]
  - Urticaria [Unknown]
  - Arthralgia [Unknown]
  - Cough [Unknown]
  - Gastrooesophageal reflux disease [Recovered/Resolved]
  - Vomiting [Unknown]
  - Drug hypersensitivity [Recovered/Resolved]

NARRATIVE: CASE EVENT DATE: 1998
